FAERS Safety Report 24020695 (Version 1)
Quarter: 2024Q2

REPORT INFORMATION
  Report Type: Spontaneous
  Country: IL (occurrence: IL)
  Receive Date: 20240627
  Receipt Date: 20240627
  Transmission Date: 20240716
  Serious: Yes (Hospitalization)
  Sender: FDA-Public Use
  Company Number: IL-Merck Healthcare KGaA-2024033164

PATIENT
  Age: 78 Year
  Sex: Female

DRUGS (1)
  1. EUTHYROX [Suspect]
     Active Substance: LEVOTHYROXINE SODIUM
     Indication: Product used for unknown indication
     Dosage: DOSAGE : 1
     Dates: start: 20240218

REACTIONS (4)
  - Asthenia [Unknown]
  - Alopecia [Unknown]
  - Insomnia [Unknown]
  - Weight decreased [Unknown]
